FAERS Safety Report 7298875-4 (Version None)
Quarter: 2011Q1

REPORT INFORMATION
  Report Type: 
  Country: None (occurrence: None)
  Receive Date: 20110217
  Receipt Date: 20110207
  Transmission Date: 20110831
  Serious: Yes (Other)
  Sender: FDA-Public Use
  Company Number: US-ROCHE-758949

PATIENT
  Age: 28 Year
  Sex: Male

DRUGS (2)
  1. IPILIMUMAB [Suspect]
     Route: 065
  2. BEVACIZUMAB [Suspect]
     Route: 065

REACTIONS (1)
  - AUTOIMMUNE THYROIDITIS [None]
